FAERS Safety Report 6635538-X (Version None)
Quarter: 2010Q1

REPORT INFORMATION
  Report Type: 
  Country: None (occurrence: None)
  Receive Date: 20100315
  Receipt Date: 20091208
  Transmission Date: 20100710
  Serious: No
  Sender: FDA-Public Use
  Company Number: US-ABBOTT-09P-163-0613898-00

PATIENT
  Sex: Male
  Weight: 88.53 kg

DRUGS (2)
  1. DEPAKOTE [Suspect]
     Indication: HEAD INJURY
     Dosage: UNSURE OF STRENGTH
     Route: 048
     Dates: start: 20080101, end: 20091201
  2. UNKNOWN ANTI-DEPRESSANT [Concomitant]
     Indication: HEADACHE
     Route: 048
     Dates: end: 20091201

REACTIONS (5)
  - FATIGUE [None]
  - HEADACHE [None]
  - HOT FLUSH [None]
  - IRRITABILITY [None]
  - UNEVALUABLE EVENT [None]
